FAERS Safety Report 8862078 (Version 2)
Quarter: 2013Q2

REPORT INFORMATION
  Report Type: Spontaneous
  Country: US (occurrence: US)
  Receive Date: 20121026
  Receipt Date: 20130606
  Transmission Date: 20140414
  Serious: Yes (Other)
  Sender: FDA-Public Use
  Company Number: US-FRI-1000039719

PATIENT
  Age: 66 Year
  Sex: Female
  Weight: 95.46 kg

DRUGS (8)
  1. VIIBRYD [Suspect]
     Indication: DEPRESSION
     Dosage: 20 MG
     Dates: start: 20120225, end: 20120629
  2. LEVOTHYROXINE [Concomitant]
     Indication: HYPOTHYROIDISM
  3. METOPROLOL [Concomitant]
     Indication: HYPERTENSION
  4. OXYCONTIN [Concomitant]
     Indication: PAIN
     Dosage: 20 MG
  5. DEPAKOTE [Concomitant]
     Indication: CONVULSION
     Dosage: 1000 MG
     Dates: start: 201112
  6. ACTONEL [Concomitant]
     Indication: OSTEOPOROSIS
  7. NITROFURANTOIN [Concomitant]
     Indication: URINARY TRACT INFECTION
  8. SIMVASTATIN [Concomitant]
     Indication: BLOOD CHOLESTEROL INCREASED

REACTIONS (3)
  - Grand mal convulsion [Recovered/Resolved]
  - Petit mal epilepsy [Recovered/Resolved]
  - Grand mal convulsion [Recovered/Resolved]
